FAERS Safety Report 6502797-3 (Version None)
Quarter: 2009Q4

REPORT INFORMATION
  Report Type: 
  Country: None (occurrence: None)
  Receive Date: 20091127
  Receipt Date: 20090616
  Transmission Date: 20100525
  Serious: Yes (Other)
  Sender: FDA-Public Use
  Company Number: WAES 0906USA02850

PATIENT
  Age: 86 Year
  Sex: Female

DRUGS (2)
  1. FOSAMAX [Suspect]
     Indication: OSTEOPOROSIS PROPHYLAXIS
     Dosage: WKY/PO
     Route: 048
     Dates: start: 20031201, end: 20071001
  2. FOSAMAX PLUS D [Suspect]
     Dosage: PO
     Route: 048
     Dates: start: 20031201, end: 20071001

REACTIONS (3)
  - ABSCESS [None]
  - ORAL TORUS [None]
  - OSTEONECROSIS [None]
